FAERS Safety Report 23420079 (Version 4)
Quarter: 2025Q2

REPORT INFORMATION
  Report Type: Spontaneous
  Country: JP (occurrence: JP)
  Receive Date: 20240119
  Receipt Date: 20250421
  Transmission Date: 20250717
  Serious: Yes (Death, Other)
  Sender: GLAXOSMITHKLINE
  Company Number: JP-GSKJP-JP2024JPN008281AA

PATIENT

DRUGS (1)
  1. DAPRODUSTAT [Suspect]
     Active Substance: DAPRODUSTAT

REACTIONS (5)
  - Pulmonary alveolar haemorrhage [Fatal]
  - General physical health deterioration [Fatal]
  - Henoch-Schonlein purpura [Unknown]
  - Haemoptysis [Unknown]
  - Condition aggravated [Unknown]
